FAERS Safety Report 5755962-7 (Version None)
Quarter: 2008Q2

REPORT INFORMATION
  Report Type: 
  Country: None (occurrence: None)
  Receive Date: 20080602
  Receipt Date: 20080528
  Transmission Date: 20081010
  Serious: Yes (Death, Hospitalization)
  Sender: FDA-Public Use
  Company Number: CA-ABBOTT-08P-028-0453959-00

PATIENT
  Age: 31 Year
  Sex: Male

DRUGS (5)
  1. CYCLOSPORINE [Suspect]
     Indication: IMMUNOSUPPRESSION
     Route: 065
  2. PREDNISONE TAB [Suspect]
     Indication: IMMUNOSUPPRESSION
     Dosage: 22.5 MG DAILY IN DIVIDED DOSES
  3. PREDNISONE TAB [Suspect]
     Route: 065
  4. MYCOPHENOLIC ACID [Suspect]
     Indication: IMMUNOSUPPRESSION
     Route: 065
  5. TELMISARTAN [Concomitant]
     Indication: DRUG USE FOR UNKNOWN INDICATION
     Dosage: NOT REPORTED
     Route: 065

REACTIONS (1)
  - FUNGAL INFECTION [None]
